FAERS Safety Report 23386111 (Version 3)
Quarter: 2024Q1

REPORT INFORMATION
  Report Type: Spontaneous
  Country: FR (occurrence: None)
  Receive Date: 20240110
  Receipt Date: 20240312
  Transmission Date: 20240409
  Serious: Yes (Other)
  Sender: FDA-Public Use
  Company Number: 2024A004662

PATIENT
  Age: 26832 Day
  Sex: Male
  Weight: 58 kg

DRUGS (5)
  1. TAGRISSO [Suspect]
     Active Substance: OSIMERTINIB
     Indication: Lung neoplasm malignant
     Route: 048
     Dates: start: 20230710
  2. TAGRISSO [Suspect]
     Active Substance: OSIMERTINIB
     Indication: Lung neoplasm malignant
     Route: 048
     Dates: start: 20231129
  3. HERBALS\SAW PALMETTO [Concomitant]
     Active Substance: HERBALS\SAW PALMETTO
  4. ZOCOR [Concomitant]
     Active Substance: SIMVASTATIN
  5. KENACORT [Concomitant]
     Active Substance: TRIAMCINOLONE

REACTIONS (2)
  - Transplant rejection [Not Recovered/Not Resolved]
  - Skin necrosis [Unknown]

NARRATIVE: CASE EVENT DATE: 20231130
